FAERS Safety Report 6216850-5 (Version None)
Quarter: 2009Q2

REPORT INFORMATION
  Report Type: 
  Country: None (occurrence: None)
  Receive Date: 20090603
  Receipt Date: 20090603
  Transmission Date: 20091009
  Serious: Yes (Other)
  Sender: FDA-Public Use
  Company Number: None

PATIENT
  Sex: Female
  Weight: 122.4712 kg

DRUGS (2)
  1. DIGOXIN [Suspect]
     Indication: CARDIAC FIBRILLATION
     Dosage: 2 0.25 ONCE DAY FEB BEFORE MARCH
  2. DIGOXIN [Suspect]
     Indication: HEART RATE ABNORMAL
     Dosage: 2 0.25 ONCE DAY FEB BEFORE MARCH

REACTIONS (2)
  - ABDOMINAL PAIN UPPER [None]
  - VOMITING [None]
